FAERS Safety Report 9343709 (Version 1)
Quarter: 2013Q2

REPORT INFORMATION
  Report Type: Spontaneous
  Country: IT (occurrence: None)
  Receive Date: 20130610
  Receipt Date: 20130610
  Transmission Date: 20140414
  Serious: Yes (Life-Threatening)
  Sender: FDA-Public Use
  Company Number: 1741360

PATIENT
  Age: 44 Year
  Sex: Male

DRUGS (11)
  1. CYTARABINE [Suspect]
     Indication: ACUTE MYELOID LEUKAEMIA (IN REMISSION)
     Dosage: 10600 MG MILLIGRAM(S) (UNKNOWN) INTRAVENOUS (NOT OTHERWISE SPECIFIED)
     Route: 042
     Dates: start: 20121109, end: 20121111
  2. ZAVEDOS [Suspect]
     Indication: ACUTE MYELOID LEUKAEMIA
     Dosage: 21 MG MILLIGRAM(S) (UNKNOWN) INTRAVENOS (NOT OTHERWISE SPECIFIED)
     Route: 042
     Dates: start: 20121109, end: 20121111
  3. ALLOPURINOLO [Concomitant]
  4. DECADRON /00016001/ [Concomitant]
  5. LASIX /00032601/ [Concomitant]
  6. VISUMETAZONE [Concomitant]
  7. PARIET [Concomitant]
  8. SPIRIVA [Concomitant]
  9. FOLINA /00024201/ [Concomitant]
  10. ZOFRAN [Concomitant]
  11. EUTIROX [Concomitant]

REACTIONS (2)
  - Shock [None]
  - Pyrexia [None]
